FAERS Safety Report 6736624-6 (Version None)
Quarter: 2010Q2

REPORT INFORMATION
  Report Type: 
  Country: None (occurrence: None)
  Receive Date: 20100521
  Receipt Date: 20100519
  Transmission Date: 20101027
  Serious: Yes (Death)
  Sender: FDA-Public Use
  Company Number: FR-WYE-G06011610

PATIENT
  Sex: Male
  Weight: 88.5 kg

DRUGS (6)
  1. TYGACIL [Suspect]
     Indication: CHOLANGITIS
     Dosage: 100 MG TOTAL DAILY
     Route: 042
     Dates: start: 20100215, end: 20100304
  2. TYGACIL [Suspect]
     Indication: ENTEROCOCCAL BACTERAEMIA
  3. ZESTORETIC [Concomitant]
  4. NOREPINEPHRINE [Concomitant]
     Indication: SHOCK
     Dosage: UNKNOWN
     Route: 042
     Dates: start: 20100214, end: 20100220
  5. VANCOMYCIN [Suspect]
     Indication: ENTEROCOCCAL BACTERAEMIA
     Dosage: 2 G TOTAL DAILY
     Route: 042
     Dates: start: 20100214, end: 20100220
  6. CANCIDAS [Concomitant]
     Indication: CANDIDIASIS
     Dosage: 50 MG TOTAL DAILY
     Route: 042
     Dates: start: 20100224, end: 20100224

REACTIONS (2)
  - MULTI-ORGAN FAILURE [None]
  - SEPTIC SHOCK [None]
